FAERS Safety Report 9651854 (Version 1)
Quarter: 2013Q4

REPORT INFORMATION
  Report Type: Spontaneous
  Country: US (occurrence: US)
  Receive Date: 20131029
  Receipt Date: 20131029
  Transmission Date: 20140711
  Serious: No
  Sender: FDA-Public Use
  Company Number: US-TEVA-441213USA

PATIENT
  Sex: Female

DRUGS (2)
  1. PLAN B ONE-STEP [Suspect]
     Dosage: 1.52 MILLIGRAM DAILY;
     Route: 048
  2. PLAN B ONE-STEP [Suspect]
     Dosage: 1.52 MILLIGRAM DAILY;
     Route: 048

REACTIONS (3)
  - Abdominal distension [Unknown]
  - Menstruation irregular [Not Recovered/Not Resolved]
  - Nausea [Unknown]
